FAERS Safety Report 15104660 (Version 1)
Quarter: 2018Q3

REPORT INFORMATION
  Report Type: Spontaneous
  Country: US (occurrence: US)
  Receive Date: 20180703
  Receipt Date: 20180703
  Transmission Date: 20181010
  Serious: No
  Sender: FDA-Public Use
  Company Number: US-BAUSCH-BL-2017-020331

PATIENT
  Age: 65 Year
  Sex: Female

DRUGS (3)
  1. BESIVANCE [Suspect]
     Active Substance: BESIFLOXACIN
     Indication: PREOPERATIVE CARE
     Dosage: LEFT EYE
     Route: 047
     Dates: start: 20170530
  2. BESIVANCE [Suspect]
     Active Substance: BESIFLOXACIN
     Indication: POSTOPERATIVE CARE
     Dosage: IN THE LEFT EYE
     Route: 047
     Dates: start: 201706, end: 20170628
  3. BESIVANCE [Suspect]
     Active Substance: BESIFLOXACIN
     Indication: INFECTION

REACTIONS (4)
  - Eye infection [Not Recovered/Not Resolved]
  - Contusion [Unknown]
  - Hair texture abnormal [Not Recovered/Not Resolved]
  - Off label use [Not Recovered/Not Resolved]

NARRATIVE: CASE EVENT DATE: 2017
